FAERS Safety Report 14409817 (Version 2)
Quarter: 2018Q1

REPORT INFORMATION
  Report Type: Spontaneous
  Country: US (occurrence: US)
  Receive Date: 20180119
  Receipt Date: 20180309
  Transmission Date: 20180509
  Serious: Yes (Other)
  Sender: FDA-Public Use
  Company Number: US-AMGEN-USASP2017183489

PATIENT
  Age: 67 Year
  Sex: Female
  Weight: 142.4 kg

DRUGS (1)
  1. NEULASTA [Suspect]
     Active Substance: PEGFILGRASTIM
     Indication: PRODUCT USED FOR UNKNOWN INDICATION
     Dosage: 6 MG, Q2WK
     Route: 058

REACTIONS (4)
  - Accidental exposure to product [Unknown]
  - Unintentional medical device removal [Unknown]
  - Wrong technique in product usage process [Unknown]
  - Neutropenia [Unknown]

NARRATIVE: CASE EVENT DATE: 20171005
